FAERS Safety Report 4982108-5 (Version None)
Quarter: 2006Q2

REPORT INFORMATION
  Report Type: 
  Country: None (occurrence: None)
  Receive Date: 20060425
  Receipt Date: 20060313
  Transmission Date: 20061013
  Serious: Yes (Hospitalization)
  Sender: FDA-Public Use
  Company Number: US-MERCK-0603USA02224

PATIENT
  Age: 70 Year
  Sex: Male
  Weight: 59 kg

DRUGS (32)
  1. VIOXX [Suspect]
     Indication: RHEUMATOID ARTHRITIS
     Route: 048
     Dates: start: 20000829, end: 20040928
  2. VIOXX [Suspect]
     Route: 048
     Dates: start: 20000829, end: 20040928
  3. VIOXX [Suspect]
     Route: 048
     Dates: start: 20000829, end: 20040928
  4. VIOXX [Suspect]
     Route: 048
     Dates: start: 20000829, end: 20040928
  5. SYNTHROID [Concomitant]
     Route: 065
  6. NASONEX [Concomitant]
     Route: 065
  7. AMOXICILLIN [Concomitant]
     Route: 065
  8. PRILOSEC [Concomitant]
     Route: 065
  9. NEXIUM [Concomitant]
     Route: 065
  10. METHOTREXATE [Suspect]
     Route: 065
  11. ULTRACET [Concomitant]
     Route: 065
  12. RANITIDINE [Concomitant]
     Route: 065
  13. DILTIAZEM HYDROCHLORIDE [Concomitant]
     Route: 065
  14. DIGITEK [Concomitant]
     Route: 065
  15. ACETAMINOPHEN AND HYDROCODONE BITARTRATE [Concomitant]
     Route: 065
  16. MARINOL [Concomitant]
     Route: 065
  17. DIFLUCAN [Concomitant]
     Route: 065
  18. OXYCONTIN [Concomitant]
     Route: 065
  19. FOLIC ACID [Concomitant]
     Route: 065
  20. AVINZA [Concomitant]
     Route: 065
  21. CYCLOBENZAPRINE HYDROCHLORIDE [Concomitant]
     Route: 065
  22. MEGESTROL ACETATE [Concomitant]
     Route: 065
  23. DOXAZOSIN MESYLATE [Concomitant]
     Route: 065
  24. WARFARIN SODIUM [Concomitant]
     Route: 065
  25. SUCRALFATE [Concomitant]
     Route: 065
  26. TOPROL-XL [Concomitant]
     Route: 065
  27. LIPITOR [Concomitant]
     Route: 065
  28. [THERAPY UNSPECIFIED] [Concomitant]
     Route: 065
  29. TRAZODONE HYDROCHLORIDE [Concomitant]
     Route: 065
  30. FOLTX [Concomitant]
     Route: 065
  31. LOVENOX [Concomitant]
     Route: 065
  32. PLAVIX [Concomitant]
     Route: 065

REACTIONS (11)
  - ACUTE MYOCARDIAL INFARCTION [None]
  - ANAEMIA OF CHRONIC DISEASE [None]
  - ATRIOVENTRICULAR BLOCK COMPLETE [None]
  - CARDIAC FAILURE CONGESTIVE [None]
  - CHANGE OF BOWEL HABIT [None]
  - CORONARY ARTERY DISEASE [None]
  - DEHYDRATION [None]
  - PRESCRIBED OVERDOSE [None]
  - PULMONARY EMBOLISM [None]
  - SICK SINUS SYNDROME [None]
  - SUPRAVENTRICULAR TACHYCARDIA [None]
